FAERS Safety Report 6386482-7 (Version None)
Quarter: 2009Q4

REPORT INFORMATION
  Report Type: 
  Country: None (occurrence: None)
  Receive Date: 20091002
  Receipt Date: 20090527
  Transmission Date: 20100525
  Serious: No
  Sender: FDA-Public Use
  Company Number: US-ASTRAZENECA-2009UW13550

PATIENT
  Age: 59 Year
  Sex: Female
  Weight: 78.9 kg

DRUGS (6)
  1. ARIMIDEX [Suspect]
     Route: 048
  2. KLONOPIN [Concomitant]
  3. LOVASTATIN [Concomitant]
  4. OMEPRAZOLE [Concomitant]
  5. HYDROCHLOROTHIAZIDE [Concomitant]
  6. ATENOLOL [Concomitant]

REACTIONS (8)
  - ANXIETY [None]
  - BACK PAIN [None]
  - INSOMNIA [None]
  - MEMORY IMPAIRMENT [None]
  - MUSCLE TIGHTNESS [None]
  - MUSCULAR WEAKNESS [None]
  - PAIN IN EXTREMITY [None]
  - TACHYPHRENIA [None]
